FAERS Safety Report 9876972 (Version 2)
Quarter: 2014Q1

REPORT INFORMATION
  Report Type: Report from Study
  Country: CA (occurrence: CA)
  Receive Date: 20140206
  Receipt Date: 20140206
  Transmission Date: 20141002
  Serious: Yes (Hospitalization, Other)
  Sender: FDA-Public Use
  Company Number: CA-ROCHE-1095102

PATIENT
  Age: 72 Year
  Sex: Female
  Weight: 81.72 kg

DRUGS (10)
  1. RITUXAN [Suspect]
     Indication: RHEUMATOID ARTHRITIS
     Dosage: LAST INFUSION ADMINISTERED ON 13/AUG/2012
     Route: 042
     Dates: start: 20100114
  2. DILAUDID [Suspect]
     Indication: PRODUCT USED FOR UNKNOWN INDICATION
     Route: 065
  3. RAMIPRIL [Concomitant]
     Indication: BLOOD PRESSURE
  4. PLAQUENIL [Concomitant]
  5. FOLIC ACID [Concomitant]
  6. TRIMIPRAMINE [Concomitant]
  7. BETOPTIC [Concomitant]
     Route: 065
  8. METHOTREXATE [Concomitant]
     Route: 065
  9. ACETAMINOPHEN [Concomitant]
     Indication: PREMEDICATION
     Route: 048
     Dates: start: 20120813
  10. HYDROCORTISONE SODIUM PHOSPHATE [Concomitant]
     Indication: PREMEDICATION
     Route: 042
     Dates: start: 20120813

REACTIONS (6)
  - Pneumonia [Recovered/Resolved]
  - Upper limb fracture [Unknown]
  - Hypothyroidism [Unknown]
  - Fall [Unknown]
  - Gastric disorder [Unknown]
  - Weight decreased [Unknown]
